FAERS Safety Report 25011195 (Version 3)
Quarter: 2025Q3

REPORT INFORMATION
  Report Type: Spontaneous
  Country: EU (occurrence: EU)
  Receive Date: 20250226
  Receipt Date: 20250719
  Transmission Date: 20251020
  Serious: Yes (Other)
  Sender: RANBAXY
  Company Number: AU-SUN PHARMACEUTICAL INDUSTRIES LTD-2025R1-490123

PATIENT
  Age: 66 Year
  Sex: Female
  Weight: 80.4 kg

DRUGS (116)
  1. CAPECITABINE [Suspect]
     Active Substance: CAPECITABINE
     Indication: Product used for unknown indication
     Route: 048
     Dates: start: 20191002, end: 20210224
  2. DOXORUBICIN HYDROCHLORIDE [Suspect]
     Active Substance: DOXORUBICIN HYDROCHLORIDE
     Indication: Breast cancer metastatic
     Route: 042
     Dates: start: 20210608, end: 20210608
  3. DOCETAXEL [Suspect]
     Active Substance: DOCETAXEL
     Indication: Breast cancer metastatic
     Route: 040
     Dates: start: 20170224, end: 20170317
  4. DOXIL [Suspect]
     Active Substance: DOXORUBICIN HYDROCHLORIDE
     Indication: Breast cancer metastatic
     Route: 042
     Dates: start: 20210608, end: 20210608
  5. FASLODEX [Suspect]
     Active Substance: FULVESTRANT
     Indication: Breast cancer metastatic
     Route: 058
     Dates: start: 20171002
  6. FASLODEX [Suspect]
     Active Substance: FULVESTRANT
     Route: 058
     Dates: start: 20171116, end: 20191001
  7. HERCEPTIN [Suspect]
     Active Substance: TRASTUZUMAB
     Indication: Breast cancer metastatic
     Route: 042
     Dates: start: 20170609, end: 20170630
  8. HERCEPTIN [Suspect]
     Active Substance: TRASTUZUMAB
     Route: 042
     Dates: start: 20170410, end: 20170427
  9. HERCEPTIN [Suspect]
     Active Substance: TRASTUZUMAB
     Route: 042
     Dates: start: 20170810, end: 20190213
  10. HERCEPTIN [Suspect]
     Active Substance: TRASTUZUMAB
     Route: 042
     Dates: start: 20210317, end: 20210428
  11. HERCEPTIN [Suspect]
     Active Substance: TRASTUZUMAB
     Route: 042
     Dates: start: 20170519, end: 20170519
  12. HERCEPTIN [Suspect]
     Active Substance: TRASTUZUMAB
     Route: 042
     Dates: start: 20170720, end: 20170720
  13. HERCEPTIN [Suspect]
     Active Substance: TRASTUZUMAB
     Route: 042
     Dates: start: 20200422, end: 20200615
  14. HERCEPTIN [Suspect]
     Active Substance: TRASTUZUMAB
     Route: 042
     Dates: start: 20170224, end: 20170224
  15. HERCEPTIN [Suspect]
     Active Substance: TRASTUZUMAB
     Route: 042
     Dates: start: 20201230, end: 20210210
  16. HERCEPTIN [Suspect]
     Active Substance: TRASTUZUMAB
     Route: 065
     Dates: start: 20170609, end: 20170630
  17. HERCEPTIN [Suspect]
     Active Substance: TRASTUZUMAB
     Route: 065
     Dates: start: 20170810, end: 20190213
  18. HERCEPTIN [Suspect]
     Active Substance: TRASTUZUMAB
     Route: 065
     Dates: start: 20200422, end: 20200615
  19. HERCEPTIN [Suspect]
     Active Substance: TRASTUZUMAB
     Route: 065
     Dates: start: 20201230, end: 20210210
  20. KADCYLA [Suspect]
     Active Substance: ADO-TRASTUZUMAB EMTANSINE
     Indication: Breast cancer metastatic
     Route: 042
     Dates: start: 20190306, end: 20190909
  21. KADCYLA [Suspect]
     Active Substance: ADO-TRASTUZUMAB EMTANSINE
     Route: 065
     Dates: start: 20190306, end: 20190909
  22. NAVELBINE [Suspect]
     Active Substance: VINORELBINE TARTRATE
     Indication: Breast cancer metastatic
     Route: 042
     Dates: start: 20200722
  23. NAVELBINE [Suspect]
     Active Substance: VINORELBINE TARTRATE
     Route: 042
     Dates: start: 20200422, end: 20200722
  24. PERJETA [Suspect]
     Active Substance: PERTUZUMAB
     Indication: Breast cancer metastatic
     Route: 042
     Dates: start: 20210317, end: 20210428
  25. PERJETA [Suspect]
     Active Substance: PERTUZUMAB
     Route: 042
     Dates: start: 20200422, end: 20200615
  26. PERJETA [Suspect]
     Active Substance: PERTUZUMAB
     Route: 042
     Dates: start: 20170224
  27. TAXOTERE [Suspect]
     Active Substance: DOCETAXEL
     Indication: Breast cancer metastatic
     Route: 042
     Dates: start: 20170609, end: 20170630
  28. TAXOTERE [Suspect]
     Active Substance: DOCETAXEL
     Route: 042
     Dates: start: 20170609, end: 20170630
  29. TAXOTERE [Suspect]
     Active Substance: DOCETAXEL
     Route: 042
     Dates: start: 20170410, end: 20170427
  30. TAXOTERE [Suspect]
     Active Substance: DOCETAXEL
     Route: 042
     Dates: start: 20210317, end: 20210428
  31. TAXOTERE [Suspect]
     Active Substance: DOCETAXEL
     Route: 042
     Dates: start: 20210317, end: 20210428
  32. TAXOTERE [Suspect]
     Active Substance: DOCETAXEL
     Route: 042
     Dates: start: 20170519, end: 20170519
  33. TAXOTERE [Suspect]
     Active Substance: DOCETAXEL
     Route: 042
     Dates: start: 20170224
  34. TAXOTERE [Suspect]
     Active Substance: DOCETAXEL
     Route: 042
     Dates: start: 20170224
  35. TAXOTERE [Suspect]
     Active Substance: DOCETAXEL
     Route: 065
     Dates: start: 20170609, end: 20170630
  36. TAXOTERE [Suspect]
     Active Substance: DOCETAXEL
     Route: 065
     Dates: start: 20170410, end: 20170427
  37. TAXOTERE [Suspect]
     Active Substance: DOCETAXEL
     Route: 065
     Dates: start: 20210317, end: 20210428
  38. TAXOTERE [Suspect]
     Active Substance: DOCETAXEL
     Route: 065
     Dates: start: 20210317, end: 20210428
  39. TAXOTERE [Suspect]
     Active Substance: DOCETAXEL
     Route: 065
     Dates: start: 20170519, end: 20170519
  40. TAXOTERE [Suspect]
     Active Substance: DOCETAXEL
     Route: 065
     Dates: start: 20170224
  41. BLEOMYCIN SULFATE [Suspect]
     Active Substance: BLEOMYCIN SULFATE
     Indication: Breast cancer metastatic
     Route: 042
     Dates: end: 20200519
  42. BLEOMYCIN SULFATE [Suspect]
     Active Substance: BLEOMYCIN SULFATE
     Route: 042
     Dates: start: 20210105, end: 20210105
  43. BLEOMYCIN SULFATE [Suspect]
     Active Substance: BLEOMYCIN SULFATE
     Route: 042
     Dates: start: 20200519, end: 20200519
  44. DENOSUMAB [Suspect]
     Active Substance: DENOSUMAB
     Indication: Breast cancer metastatic
     Route: 042
     Dates: start: 20201230, end: 20210210
  45. TRASTUZUMAB [Suspect]
     Active Substance: TRASTUZUMAB
     Indication: Breast cancer metastatic
     Route: 058
     Dates: start: 20200814, end: 20201015
  46. TRASTUZUMAB [Suspect]
     Active Substance: TRASTUZUMAB
     Route: 040
     Dates: start: 20170609, end: 20170630
  47. TRASTUZUMAB [Suspect]
     Active Substance: TRASTUZUMAB
     Route: 040
     Dates: start: 20170410, end: 20170427
  48. TRASTUZUMAB [Suspect]
     Active Substance: TRASTUZUMAB
     Route: 040
     Dates: start: 20170810, end: 20190213
  49. TRASTUZUMAB [Suspect]
     Active Substance: TRASTUZUMAB
     Route: 040
     Dates: start: 20210317, end: 20210428
  50. TRASTUZUMAB [Suspect]
     Active Substance: TRASTUZUMAB
     Route: 040
     Dates: start: 20170519, end: 20170519
  51. TRASTUZUMAB [Suspect]
     Active Substance: TRASTUZUMAB
     Route: 040
     Dates: start: 20170720, end: 20170720
  52. TRASTUZUMAB [Suspect]
     Active Substance: TRASTUZUMAB
     Route: 040
     Dates: start: 20200422, end: 20200615
  53. TRASTUZUMAB [Suspect]
     Active Substance: TRASTUZUMAB
     Route: 040
     Dates: start: 20170224, end: 20170224
  54. TRASTUZUMAB [Suspect]
     Active Substance: TRASTUZUMAB
     Route: 040
     Dates: start: 20201230, end: 20210210
  55. TRASTUZUMAB [Suspect]
     Active Substance: TRASTUZUMAB
     Route: 040
     Dates: start: 20170609, end: 20170630
  56. TRASTUZUMAB [Suspect]
     Active Substance: TRASTUZUMAB
     Route: 040
     Dates: start: 20170810, end: 20190213
  57. TRASTUZUMAB [Suspect]
     Active Substance: TRASTUZUMAB
     Route: 040
     Dates: start: 20200422, end: 20200615
  58. TRASTUZUMAB [Suspect]
     Active Substance: TRASTUZUMAB
     Route: 040
     Dates: start: 20201230, end: 20210210
  59. LAPATINIB [Suspect]
     Active Substance: LAPATINIB
     Indication: Breast cancer metastatic
     Route: 048
     Dates: start: 20191002, end: 20200107
  60. PERTUZUMAB [Suspect]
     Active Substance: PERTUZUMAB
     Indication: Product used for unknown indication
     Route: 065
     Dates: start: 20170214, end: 20210428
  61. TUCATINIB [Suspect]
     Active Substance: TUCATINIB
     Indication: Breast cancer metastatic
     Route: 048
     Dates: start: 20201230, end: 20210210
  62. TYKERB [Suspect]
     Active Substance: LAPATINIB DITOSYLATE
     Indication: Breast cancer metastatic
     Route: 048
     Dates: start: 20191002, end: 20200107
  63. TYKERB [Suspect]
     Active Substance: LAPATINIB DITOSYLATE
     Route: 048
     Dates: start: 20200108, end: 20200421
  64. XELODA [Suspect]
     Active Substance: CAPECITABINE
     Indication: Breast cancer metastatic
     Route: 048
     Dates: start: 20191002, end: 20200107
  65. XELODA [Suspect]
     Active Substance: CAPECITABINE
     Route: 048
     Dates: start: 20200108
  66. XELODA [Suspect]
     Active Substance: CAPECITABINE
     Route: 048
     Dates: start: 20210210, end: 20210224
  67. XELODA [Suspect]
     Active Substance: CAPECITABINE
     Route: 048
     Dates: start: 20201230, end: 20210203
  68. BUTYLSCOPOLAMINE BROMIDE [Concomitant]
     Active Substance: BUTYLSCOPOLAMINE BROMIDE
     Indication: Gastrointestinal disorder
     Route: 065
     Dates: start: 20210618, end: 20210618
  69. POLYETHYLENE GLYCOL 3350\POTASSIUM CHLORIDE\SODIUM BICARBONATE\SODIUM [Concomitant]
     Active Substance: POLYETHYLENE GLYCOL 3350\POTASSIUM CHLORIDE\SODIUM BICARBONATE\SODIUM CHLORIDE
     Indication: Product used for unknown indication
     Route: 065
     Dates: start: 20210608, end: 20210616
  70. Paracodin [Concomitant]
     Indication: Cough
     Route: 065
     Dates: start: 20210608, end: 20210610
  71. Paracodin [Concomitant]
     Route: 065
     Dates: start: 20210428, end: 20210615
  72. ALPRAZOLAM [Concomitant]
     Active Substance: ALPRAZOLAM
     Indication: Restlessness
     Route: 065
     Dates: start: 20210613, end: 20210615
  73. BETAMETHASONE DIPROPIONATE [Concomitant]
     Active Substance: BETAMETHASONE DIPROPIONATE
     Indication: Eczema
     Route: 061
     Dates: start: 20191122
  74. DROPERIDOL [Concomitant]
     Active Substance: DROPERIDOL
     Indication: Gastrointestinal disorder
     Route: 065
  75. DROPERIDOL [Concomitant]
     Active Substance: DROPERIDOL
     Indication: Restlessness
     Route: 065
     Dates: start: 20210612, end: 20210617
  76. DROPERIDOL [Concomitant]
     Active Substance: DROPERIDOL
     Route: 065
     Dates: start: 20210618, end: 20210623
  77. FENTANYL [Concomitant]
     Active Substance: FENTANYL
     Indication: Product used for unknown indication
     Route: 062
  78. HYDROMORPHONE HYDROCHLORIDE [Concomitant]
     Active Substance: HYDROMORPHONE HYDROCHLORIDE
     Indication: Product used for unknown indication
     Route: 065
     Dates: start: 20210611, end: 20210615
  79. LACTULOSE [Concomitant]
     Active Substance: LACTULOSE
     Indication: Product used for unknown indication
     Route: 065
  80. LEVOTHYROXINE SODIUM [Concomitant]
     Active Substance: LEVOTHYROXINE SODIUM
     Indication: Product used for unknown indication
     Route: 065
     Dates: start: 20170303, end: 20210615
  81. LORAZEPAM [Concomitant]
     Active Substance: LORAZEPAM
     Indication: Restlessness
     Route: 065
     Dates: start: 20210611, end: 20210621
  82. LORAZEPAM [Concomitant]
     Active Substance: LORAZEPAM
     Route: 065
     Dates: start: 20210618, end: 20210623
  83. MORPHINE [Concomitant]
     Active Substance: MORPHINE
     Indication: Dyspnoea
     Route: 065
     Dates: start: 20210616, end: 20210623
  84. MORPHINE [Concomitant]
     Active Substance: MORPHINE
     Route: 065
     Dates: start: 20210521, end: 20210616
  85. ONDANSETRON [Concomitant]
     Active Substance: ONDANSETRON
     Indication: Gastrointestinal disorder
     Route: 065
     Dates: start: 20210608, end: 20210610
  86. ACETAMINOPHEN [Concomitant]
     Active Substance: ACETAMINOPHEN
     Indication: Product used for unknown indication
     Route: 065
     Dates: start: 20210622, end: 20210622
  87. PEGFILGRASTIM [Concomitant]
     Active Substance: PEGFILGRASTIM
     Indication: Product used for unknown indication
     Route: 065
     Dates: start: 20210610, end: 20210610
  88. PREGABALIN [Concomitant]
     Active Substance: PREGABALIN
     Indication: Product used for unknown indication
     Route: 065
     Dates: start: 20190821, end: 20210616
  89. VITAMIN C [Concomitant]
     Active Substance: ASCORBIC ACID
     Indication: Gastrointestinal disorder
     Route: 065
     Dates: start: 20210611, end: 20210614
  90. XGEVA [Concomitant]
     Active Substance: DENOSUMAB
     Indication: Product used for unknown indication
     Route: 065
     Dates: start: 20170202, end: 20210521
  91. ZOFRAN [Concomitant]
     Active Substance: ONDANSETRON HYDROCHLORIDE
     Indication: Product used for unknown indication
     Route: 065
     Dates: start: 20210608, end: 20210610
  92. ZOFRAN [Concomitant]
     Active Substance: ONDANSETRON HYDROCHLORIDE
     Route: 065
     Dates: start: 20210611, end: 20210612
  93. ZOFRAN [Concomitant]
     Active Substance: ONDANSETRON HYDROCHLORIDE
     Route: 065
     Dates: start: 20210612, end: 20210616
  94. CARBOXYMETHYLCELLULOSE SODIUM [Concomitant]
     Active Substance: CARBOXYMETHYLCELLULOSE SODIUM
     Indication: Product used for unknown indication
     Route: 065
  95. BETAISODONA [Concomitant]
     Active Substance: POVIDONE-IODINE
     Indication: Skin fissures
     Route: 065
     Dates: start: 20200430, end: 20200515
  96. BETAMETHASONE DIPROPIONATE [Concomitant]
     Active Substance: BETAMETHASONE DIPROPIONATE
     Indication: Eczema
     Route: 001
     Dates: start: 20191122
  97. DRONABINOL [Concomitant]
     Active Substance: DRONABINOL
     Indication: Product used for unknown indication
     Route: 065
     Dates: start: 20210608, end: 20210612
  98. APREPITANT [Concomitant]
     Active Substance: APREPITANT
     Indication: Product used for unknown indication
     Route: 065
     Dates: start: 20200428, end: 20200430
  99. EUTHYROX [Concomitant]
     Active Substance: LEVOTHYROXINE SODIUM
     Indication: Product used for unknown indication
     Route: 065
     Dates: start: 20170303, end: 20210615
  100. FUROSEMIDE [Concomitant]
     Active Substance: FUROSEMIDE
     Indication: Product used for unknown indication
     Route: 065
     Dates: start: 20170810, end: 20171213
  101. HALSET [Concomitant]
     Indication: Cough
     Route: 065
     Dates: start: 20210611, end: 20210615
  102. HYDROMORPHONE HYDROCHLORIDE [Concomitant]
     Active Substance: HYDROMORPHONE HYDROCHLORIDE
     Indication: Product used for unknown indication
     Route: 065
     Dates: start: 20210611, end: 20210615
  103. KALIORAL [Concomitant]
     Indication: Product used for unknown indication
     Route: 065
     Dates: start: 20200427, end: 20200428
  104. LACTULOSE [Concomitant]
     Active Substance: LACTULOSE
     Indication: Product used for unknown indication
     Route: 065
  105. LEUKICHTAN [Concomitant]
     Indication: Product used for unknown indication
     Route: 065
     Dates: start: 20200430
  106. EDOXABAN TOSYLATE [Concomitant]
     Active Substance: EDOXABAN TOSYLATE
     Indication: Product used for unknown indication
     Route: 065
     Dates: start: 20200613, end: 20210611
  107. LOVENOX [Concomitant]
     Active Substance: ENOXAPARIN SODIUM
     Indication: Product used for unknown indication
     Route: 065
     Dates: start: 20170224, end: 20171130
  108. SILICON [Concomitant]
     Active Substance: SILICON
     Indication: Skin fissures
     Route: 065
     Dates: start: 20200521, end: 20200602
  109. NAVELBINE [Concomitant]
     Active Substance: VINORELBINE TARTRATE
     Indication: Breast cancer metastatic
     Route: 042
     Dates: start: 20200422, end: 20200722
  110. NERIFORTE [Concomitant]
     Indication: Skin fissures
     Route: 061
     Dates: start: 20200430, end: 20200515
  111. NOVALGIN [Concomitant]
     Indication: Product used for unknown indication
     Route: 065
     Dates: start: 20210608, end: 20210612
  112. OLEOVIT [Concomitant]
     Indication: Product used for unknown indication
     Route: 048
     Dates: start: 20170329, end: 20210615
  113. OLIVE OIL [Concomitant]
     Active Substance: OLIVE OIL
     Indication: Paronychia
     Route: 065
     Dates: start: 20191002, end: 20200512
  114. ONDANSETRON [Concomitant]
     Active Substance: ONDANSETRON
     Indication: Gastrointestinal disorder
     Route: 065
     Dates: start: 20210608, end: 20210610
  115. PANTOPRAZOLE SODIUM [Concomitant]
     Active Substance: PANTOPRAZOLE SODIUM
     Indication: Gastrointestinal disorder
     Route: 065
     Dates: start: 20170722, end: 20180327
  116. ZOFRAN [Concomitant]
     Active Substance: ONDANSETRON HYDROCHLORIDE
     Indication: Gastrointestinal disorder
     Route: 065
     Dates: start: 20210611, end: 20210612

REACTIONS (21)
  - Back pain [Recovered/Resolved]
  - Brain oedema [Not Recovered/Not Resolved]
  - Candida infection [Not Recovered/Not Resolved]
  - C-reactive protein increased [Not Recovered/Not Resolved]
  - Fatigue [Recovered/Resolved]
  - Metastases to central nervous system [Not Recovered/Not Resolved]
  - Metastases to lymph nodes [Not Recovered/Not Resolved]
  - Nausea [Recovered/Resolved]
  - Pseudomonal sepsis [Recovered/Resolved]
  - Restlessness [Unknown]
  - Sepsis [Recovered/Resolved]
  - Streptococcal sepsis [Recovered/Resolved]
  - Vascular device infection [Recovered/Resolved]
  - Vomiting [Recovered/Resolved]
  - Nail bed inflammation [Unknown]
  - Pleural effusion [Recovered/Resolved]
  - Varicose vein [Not Recovered/Not Resolved]
  - Paronychia [Recovered/Resolved]
  - Nasal mucosal disorder [Recovered/Resolved]
  - Skin fissures [Recovered/Resolved]
  - Eczema [Not Recovered/Not Resolved]

NARRATIVE: CASE EVENT DATE: 20191101
